FAERS Safety Report 4462982-1 (Version None)
Quarter: 2004Q3

REPORT INFORMATION
  Report Type: 
  Country: None (occurrence: None)
  Receive Date: 20040930
  Receipt Date: 20040921
  Transmission Date: 20050211
  Serious: Yes (Hospitalization)
  Sender: FDA-Public Use
  Company Number: 200417213US

PATIENT
  Sex: Female

DRUGS (1)
  1. KETEK [Suspect]
     Indication: PNEUMONIA
     Dosage: DOSE: UNK
     Dates: start: 20040917

REACTIONS (1)
  - CONVULSION [None]
